FAERS Safety Report 22046300 (Version 1)
Quarter: 2023Q1

REPORT INFORMATION
  Report Type: Spontaneous
  Country: CA (occurrence: CA)
  Receive Date: 20230228
  Receipt Date: 20230228
  Transmission Date: 20230418
  Serious: Yes (Other)
  Sender: FDA-Public Use
  Company Number: None

PATIENT
  Age: 34 Year
  Sex: Female

DRUGS (9)
  1. MORPHINE SULFATE [Suspect]
     Active Substance: MORPHINE SULFATE
     Indication: Chronic spontaneous urticaria
     Dosage: UNK
     Route: 065
  2. BILASTINE [Concomitant]
     Active Substance: BILASTINE
     Indication: Product used for unknown indication
     Dosage: UNK, 2 EVERY 1 DAYS
     Route: 065
  3. BUDESONIDE\FORMOTEROL FUMARATE [Concomitant]
     Active Substance: BUDESONIDE\FORMOTEROL FUMARATE
     Indication: Product used for unknown indication
     Dosage: 2.0 DOSAGE FORM, DAILY
     Route: 065
  4. EPINEPHRINE [Concomitant]
     Active Substance: EPINEPHRINE
     Indication: Product used for unknown indication
     Dosage: UNK
     Route: 065
  5. PANTOPRAZOLE SODIUM [Concomitant]
     Active Substance: PANTOPRAZOLE SODIUM
     Indication: Gastrooesophageal reflux disease
     Dosage: UNK
     Route: 065
  6. Reactine [Concomitant]
     Indication: Product used for unknown indication
     Dosage: UNK
     Route: 065
  7. RUPATADINE FUMARATE [Concomitant]
     Active Substance: RUPATADINE FUMARATE
     Indication: Product used for unknown indication
     Dosage: UNK 2 EVERY 1 DAYS
     Route: 065
  8. SINGULAIR [Concomitant]
     Active Substance: MONTELUKAST SODIUM
     Indication: Product used for unknown indication
     Dosage: UNK
     Route: 065
  9. TERBUTALINE SULFATE [Concomitant]
     Active Substance: TERBUTALINE SULFATE
     Indication: Product used for unknown indication
     Dosage: UNK
     Route: 065

REACTIONS (13)
  - Anaphylactic reaction [Unknown]
  - Diarrhoea [Unknown]
  - Dyspnoea [Unknown]
  - Eye swelling [Unknown]
  - Lacrimation increased [Unknown]
  - Malaise [Unknown]
  - Product use in unapproved indication [Unknown]
  - Pruritus [Unknown]
  - Rash [Unknown]
  - Rhinorrhoea [Unknown]
  - Swelling [Unknown]
  - Urticaria [Unknown]
  - Idiopathic urticaria [Unknown]
